FAERS Safety Report 5413641-X (Version None)
Quarter: 2007Q3

REPORT INFORMATION
  Report Type: 
  Country: None (occurrence: None)
  Receive Date: 20070810
  Receipt Date: 20070731
  Transmission Date: 20080115
  Serious: No
  Sender: FDA-Public Use
  Company Number: 2007-162143-NL

PATIENT
  Age: 27 Year
  Sex: Female

DRUGS (5)
  1. ETONOGESTREL [Suspect]
     Dosage: DF SUBCUTANEOUS
     Route: 058
     Dates: start: 20030814, end: 20030916
  2. QUETIAPINE FUMARATE [Concomitant]
  3. TEMAZEPAM [Concomitant]
  4. DIAZEPAM [Concomitant]
  5. VALPROATE SODIUM [Concomitant]

REACTIONS (6)
  - DEPRESSION [None]
  - EATING DISORDER [None]
  - INSOMNIA [None]
  - MOOD ALTERED [None]
  - PANIC ATTACK [None]
  - SUICIDE ATTEMPT [None]
